FAERS Safety Report 17007725 (Version 1)
Quarter: 2019Q4

REPORT INFORMATION
  Report Type: Spontaneous
  Country: GB (occurrence: GB)
  Receive Date: 20191108
  Receipt Date: 20191108
  Transmission Date: 20200122
  Serious: Yes (Other)
  Sender: FDA-Public Use
  Company Number: GB-009507513-1911GBR002307

PATIENT
  Age: 72 Year
  Sex: Female
  Weight: 78 kg

DRUGS (5)
  1. LATANOPROST. [Concomitant]
     Active Substance: LATANOPROST
     Dosage: UNK
     Dates: start: 20180129
  2. DORZOLAMIDE HYDROCHLORIDE. [Suspect]
     Active Substance: DORZOLAMIDE HYDROCHLORIDE
     Dosage: 20MG/ML, DAILY, IN EACH EYE
     Route: 065
     Dates: start: 20190211
  3. OXYBUTYNIN. [Concomitant]
     Active Substance: OXYBUTYNIN CHLORIDE
     Dosage: UNK
     Dates: start: 20190129
  4. LANSOPRAZOLE. [Concomitant]
     Active Substance: LANSOPRAZOLE
     Dosage: UNK
     Dates: start: 20190129, end: 20190226
  5. TIMOLOL. [Concomitant]
     Active Substance: TIMOLOL
     Dosage: UNK
     Dates: start: 20181115

REACTIONS (5)
  - Eye colour change [Unknown]
  - Dry mouth [Unknown]
  - Pigmentation disorder [Unknown]
  - Somnolence [Unknown]
  - Headache [Recovered/Resolved]
